FAERS Safety Report 15573922 (Version 2)
Quarter: 2019Q3

REPORT INFORMATION
  Report Type: Report from Study
  Country: US (occurrence: US)
  Receive Date: 20181101
  Receipt Date: 20190801
  Transmission Date: 20191004
  Serious: Yes (Other)
  Sender: FDA-Public Use
  Company Number: US-ROCHE-2207885

PATIENT
  Age: 45 Year
  Sex: Female
  Weight: 65.83 kg

DRUGS (6)
  1. OCREVUS [Suspect]
     Active Substance: OCRELIZUMAB
     Indication: RELAPSING MULTIPLE SCLEROSIS
     Dosage: ONGOING: UNKNOWN
     Route: 042
     Dates: start: 20180515
  2. NUVIGIL [Concomitant]
     Active Substance: ARMODAFINIL
     Dosage: PRN; ONGOING YES
     Route: 048
  3. OCREVUS [Suspect]
     Active Substance: OCRELIZUMAB
     Dosage: SECOND HALF DOSE
     Route: 042
     Dates: start: 20180529
  4. BACLOFEN. [Concomitant]
     Active Substance: BACLOFEN
     Indication: MUSCLE SPASMS
     Dosage: ONGOING YES
     Route: 048
  5. OCREVUS [Suspect]
     Active Substance: OCRELIZUMAB
     Route: 042
     Dates: start: 20180729
  6. AMPYRA [Concomitant]
     Active Substance: DALFAMPRIDINE
     Dosage: ONGOING YES
     Route: 065

REACTIONS (3)
  - Balance disorder [Recovered/Resolved]
  - Influenza [Recovered/Resolved]
  - Dizziness [Recovered/Resolved]

NARRATIVE: CASE EVENT DATE: 20180529
